FAERS Safety Report 25656991 (Version 2)
Quarter: 2025Q3

REPORT INFORMATION
  Report Type: Spontaneous
  Country: GB (occurrence: GB)
  Receive Date: 20250807
  Receipt Date: 20250820
  Transmission Date: 20251021
  Serious: Yes (Hospitalization, Other)
  Sender: ABBVIE
  Company Number: GB-ABBVIE-6393660

PATIENT
  Age: 34 Year
  Sex: Female

DRUGS (1)
  1. BOTOX [Suspect]
     Active Substance: ONABOTULINUMTOXINA
     Indication: Product used for unknown indication
     Route: 065

REACTIONS (6)
  - Botulism [Unknown]
  - Hospitalisation [Not Recovered/Not Resolved]
  - Suspected counterfeit product [Unknown]
  - Paraesthesia [Unknown]
  - Fatigue [Unknown]
  - Dyspnoea [Unknown]
